FAERS Safety Report 14880045 (Version 1)
Quarter: 2018Q2

REPORT INFORMATION
  Report Type: Spontaneous
  Country: US (occurrence: US)
  Receive Date: 20180424
  Receipt Date: 20180424
  Transmission Date: 20180711
  Serious: Yes (Other)
  Sender: FDA-Public Use
  Company Number: None

PATIENT
  Age: 68 Year
  Sex: Female
  Weight: 65.25 kg

DRUGS (1)
  1. CHLORTHALIDONE. [Suspect]
     Active Substance: CHLORTHALIDONE
     Dosage: ?          QUANTITY:30 TABLET(S);?
     Route: 047

REACTIONS (4)
  - Fine motor skill dysfunction [None]
  - Hypoaesthesia [None]
  - Paraesthesia [None]
  - Musculoskeletal stiffness [None]

NARRATIVE: CASE EVENT DATE: 20180131
